FAERS Safety Report 12658803 (Version 1)
Quarter: 2016Q3

REPORT INFORMATION
  Report Type: Spontaneous
  Country: US (occurrence: None)
  Receive Date: 20160816
  Receipt Date: 20160816
  Transmission Date: 20161109
  Serious: Yes (Other)
  Sender: FDA-Public Use
  Company Number: None

PATIENT
  Age: 67 Year
  Sex: Female
  Weight: 52.4 kg

DRUGS (12)
  1. ACETAMINOPHEN. [Concomitant]
     Active Substance: ACETAMINOPHEN
  2. DIPHENHYDRAMINE. [Concomitant]
     Active Substance: DIPHENHYDRAMINE
  3. FAMOTIDINE. [Concomitant]
     Active Substance: FAMOTIDINE
  4. VINCRISTINE [Concomitant]
     Active Substance: VINCRISTINE
  5. LEVOTHYROXINE. [Concomitant]
     Active Substance: LEVOTHYROXINE
  6. FOSAPREPITANT [Concomitant]
     Active Substance: FOSAPREPITANT
  7. DOXORUBICIN, 79.6 MG [Suspect]
     Active Substance: DOXORUBICIN
     Indication: CHRONIC LYMPHOCYTIC LEUKAEMIA
     Route: 041
     Dates: start: 20160806
  8. PALONOSETRON [Concomitant]
     Active Substance: PALONOSETRON
  9. RITUXIMAB [Concomitant]
     Active Substance: RITUXIMAB
  10. ENOXAPARIN [Concomitant]
     Active Substance: ENOXAPARIN
  11. PREDISONE [Concomitant]
     Active Substance: PREDNISONE
  12. ALLOPURINOL. [Concomitant]
     Active Substance: ALLOPURINOL

REACTIONS (4)
  - Tachycardia [None]
  - Dyspnoea [None]
  - Chest discomfort [None]
  - Cardiac failure congestive [None]

NARRATIVE: CASE EVENT DATE: 20160806
